FAERS Safety Report 7051359-0 (Version None)
Quarter: 2010Q4

REPORT INFORMATION
  Report Type: 
  Country: None (occurrence: None)
  Receive Date: 20101013
  Receipt Date: 20100928
  Transmission Date: 20110411
  Serious: Yes (Hospitalization, Other)
  Sender: FDA-Public Use
  Company Number: AMAG201000368

PATIENT
  Age: 73 Year
  Sex: Female
  Weight: 115.2 kg

DRUGS (12)
  1. FERAHEME [Suspect]
     Indication: IRON DEFICIENCY ANAEMIA
     Dosage: 510 MG, SINGLE INTRAVENOUS
     Route: 042
     Dates: start: 20100715, end: 20100715
  2. FERAHEME [Suspect]
     Indication: IRON DEFICIENCY ANAEMIA
     Dosage: 510 MG, SINGLE INTRAVENOUS
     Route: 042
     Dates: start: 20100720, end: 20100720
  3. MICARDIS [Concomitant]
  4. NEXIUM [Concomitant]
  5. CALCITRIOL [Concomitant]
  6. ASPIRIN [Concomitant]
  7. METOPROLOL [Concomitant]
  8. LASIX [Concomitant]
  9. ADALAT [Concomitant]
  10. LANTUS [Concomitant]
  11. NOVOLOG [Concomitant]
  12. ALLOPURINOL [Concomitant]

REACTIONS (8)
  - DERMATITIS EXFOLIATIVE [None]
  - HEADACHE [None]
  - HYPERSENSITIVITY [None]
  - NEUROPATHY PERIPHERAL [None]
  - OEDEMA PERIPHERAL [None]
  - PAIN [None]
  - SKIN EXFOLIATION [None]
  - STEVENS-JOHNSON SYNDROME [None]
